FAERS Safety Report 8398319-5 (Version None)
Quarter: 2012Q2

REPORT INFORMATION
  Report Type: 
  Country: None (occurrence: None)
  Receive Date: 20120531
  Receipt Date: 20120518
  Transmission Date: 20120825
  Serious: No
  Sender: FDA-Public Use
  Company Number: US-ASTRAZENECA-2011SE33505

PATIENT
  Age: 50 Year
  Sex: Female
  Weight: 90.7 kg

DRUGS (14)
  1. OMEPRAZOLE [Concomitant]
  2. JANUVIA [Concomitant]
  3. SERTRALINE HYDROCHLORIDE [Concomitant]
  4. SEROQUEL XR [Suspect]
     Route: 048
  5. LEVOTHYROXINE SODIUM [Concomitant]
  6. ZETIA [Concomitant]
  7. LOVASTATIN [Concomitant]
  8. METHOTREXATE [Concomitant]
  9. SEROQUEL XR [Suspect]
     Indication: MAJOR DEPRESSION
     Route: 048
     Dates: start: 20000101
  10. ENALAPRIL MALEATE [Concomitant]
  11. LEFLUNOMIDE [Concomitant]
  12. LORTAB [Concomitant]
  13. ATENOLOL [Concomitant]
  14. HYDROCHLOROTHIAZIDE [Concomitant]

REACTIONS (9)
  - INTENTIONAL DRUG MISUSE [None]
  - TOOTH FRACTURE [None]
  - FEELING ABNORMAL [None]
  - ACCIDENT AT WORK [None]
  - BACK INJURY [None]
  - PAIN [None]
  - SLEEP DISORDER [None]
  - NECK INJURY [None]
  - JOINT INJURY [None]
